FAERS Safety Report 13158374 (Version 2)
Quarter: 2017Q3

REPORT INFORMATION
  Report Type: Spontaneous
  Country: US (occurrence: US)
  Receive Date: 20170127
  Receipt Date: 20170731
  Transmission Date: 20171127
  Serious: Yes (Other)
  Sender: FDA-Public Use
  Company Number: US-SA-2017SA010583

PATIENT
  Age: 64 Year
  Sex: Female

DRUGS (1)
  1. AUBAGIO [Suspect]
     Active Substance: TERIFLUNOMIDE
     Indication: MULTIPLE SCLEROSIS
     Route: 048
     Dates: start: 2015

REACTIONS (5)
  - Wound abscess [Unknown]
  - Weight decreased [Unknown]
  - White blood cell count decreased [Unknown]
  - Wound infection [Unknown]
  - Uterine disorder [Unknown]

NARRATIVE: CASE EVENT DATE: 201610
